FAERS Safety Report 6497663-6 (Version None)
Quarter: 2009Q4

REPORT INFORMATION
  Report Type: 
  Country: None (occurrence: None)
  Receive Date: 20091215
  Receipt Date: 20091130
  Transmission Date: 20100525
  Serious: Yes (Other)
  Sender: FDA-Public Use
  Company Number: CN-JNJFOC-20091201280

PATIENT
  Sex: Female

DRUGS (2)
  1. GYNO-DAKTARIN [Suspect]
     Route: 067
     Dates: start: 20080101, end: 20080101
  2. GYNO-DAKTARIN [Suspect]
     Indication: VULVOVAGINAL CANDIDIASIS
     Route: 067
     Dates: start: 20080101, end: 20080101

REACTIONS (2)
  - ANAPHYLACTIC REACTION [None]
  - GENITAL PAIN [None]
